FAERS Safety Report 9240431 (Version 1)
Quarter: 2013Q2

REPORT INFORMATION
  Report Type: Spontaneous
  Country: GB (occurrence: None)
  Receive Date: 20130417
  Receipt Date: 20130417
  Transmission Date: 20140414
  Serious: Yes (Other)
  Sender: FDA-Public Use
  Company Number: INDI-GB-2013-0030

PATIENT
  Age: 60 Year
  Sex: Female
  Weight: 68 kg

DRUGS (1)
  1. INDOMETHACIN [Suspect]
     Indication: FACIAL PAIN
     Route: 048
     Dates: start: 20130201, end: 20130201

REACTIONS (4)
  - Aphasia [None]
  - Palpitations [None]
  - Asthenia [None]
  - Off label use [None]
